FAERS Safety Report 23998872 (Version 1)
Quarter: 2024Q2

REPORT INFORMATION
  Report Type: Spontaneous
  Country: HK (occurrence: HK)
  Receive Date: 20240621
  Receipt Date: 20240621
  Transmission Date: 20240716
  Serious: Yes (Other)
  Sender: FDA-Public Use
  Company Number: HK-BAYER-2023A167886

PATIENT
  Age: 71 Year
  Sex: Male

DRUGS (1)
  1. EYLEA [Suspect]
     Active Substance: AFLIBERCEPT
     Indication: Polypoidal choroidal vasculopathy
     Dosage: 2 MG, ONCE, 40 MG/ML
     Route: 031

REACTIONS (7)
  - Polypoidal choroidal vasculopathy [Unknown]
  - Retinal cyst [Unknown]
  - Retinal haemorrhage [Unknown]
  - Detachment of retinal pigment epithelium [Unknown]
  - Visual impairment [Unknown]
  - Product prescribing issue [Unknown]
  - Inappropriate schedule of product administration [Unknown]
